FAERS Safety Report 5066914-7 (Version None)
Quarter: 2006Q3

REPORT INFORMATION
  Report Type: 
  Country: None (occurrence: None)
  Receive Date: 20060728
  Receipt Date: 20060717
  Transmission Date: 20061208
  Serious: Yes (Hospitalization)
  Sender: FDA-Public Use
  Company Number: S06-USA-01052-01

PATIENT
  Age: 44 Year
  Sex: Female

DRUGS (6)
  1. LEXAPRO [Suspect]
     Indication: ANXIETY
     Dates: start: 20060216, end: 20060223
  2. LEXAPRO [Suspect]
     Indication: DEPRESSION
     Dates: start: 20060216, end: 20060223
  3. WELLBUTRIN SR [Suspect]
     Dosage: 150 MG QHS
     Dates: start: 20060215, end: 20060101
  4. DYAZIDE [Concomitant]
  5. LASIX [Concomitant]
  6. ESTROSTEP (ESTROGEN/PROGESTERONE) [Concomitant]

REACTIONS (14)
  - BLOOD PRESSURE INCREASED [None]
  - CHEST PAIN [None]
  - DIARRHOEA [None]
  - DYSGEUSIA [None]
  - FATIGUE [None]
  - GASTROENTERITIS [None]
  - GASTROINTESTINAL PAIN [None]
  - GASTROOESOPHAGEAL REFLUX DISEASE [None]
  - HEART RATE INCREASED [None]
  - MONOCYTE COUNT INCREASED [None]
  - NAUSEA [None]
  - NEUTROPHIL COUNT INCREASED [None]
  - PANIC ATTACK [None]
  - WHITE BLOOD CELL COUNT INCREASED [None]
